FAERS Safety Report 14109705 (Version 1)
Quarter: 2017Q4

REPORT INFORMATION
  Report Type: Spontaneous
  Country: AU (occurrence: AU)
  Receive Date: 20171020
  Receipt Date: 20171020
  Transmission Date: 20180321
  Serious: Yes (Other)
  Sender: FDA-Public Use
  Company Number: AU-009507513-1710AUS009402

PATIENT
  Sex: Female

DRUGS (4)
  1. DIPROSONE [Suspect]
     Active Substance: BETAMETHASONE DIPROPIONATE
     Dosage: DAILY
     Dates: start: 2007, end: 2013
  2. HYDROCORTISONE. [Suspect]
     Active Substance: HYDROCORTISONE
     Dosage: UNK
     Dates: end: 20150312
  3. DIPROSONE [Suspect]
     Active Substance: BETAMETHASONE DIPROPIONATE
     Dosage: DAILY
     Dates: end: 20150312
  4. HYDROCORTISONE. [Suspect]
     Active Substance: HYDROCORTISONE
     Dosage: UNK
     Dates: end: 2013

REACTIONS (1)
  - Steroid withdrawal syndrome [Not Recovered/Not Resolved]
